FAERS Safety Report 10407359 (Version 1)
Quarter: 2014Q3

REPORT INFORMATION
  Report Type: Spontaneous
  Country: US (occurrence: US)
  Receive Date: 20140825
  Receipt Date: 20140825
  Transmission Date: 20150326
  Serious: No
  Sender: FDA-Public Use
  Company Number: US-BAYER-2014-126280

PATIENT
  Age: 79 Year
  Sex: Female
  Weight: 66 kg

DRUGS (3)
  1. BAYER LOW DOSE [Concomitant]
     Active Substance: ASPIRIN
  2. ALEVE [Suspect]
     Active Substance: NAPROXEN SODIUM
     Indication: ARTHRITIS
     Dosage: 1 DF, BID, BOTTLE COUNT 50S
     Route: 048
     Dates: start: 2014, end: 20140808
  3. ALEVE [Suspect]
     Active Substance: NAPROXEN SODIUM
     Indication: ARTHRITIS
     Dosage: 1 DF, ONCE, BOTTLE COUNT 40S
     Route: 048
     Dates: start: 201408, end: 201408

REACTIONS (4)
  - Chest pain [Recovered/Resolved]
  - Dysphagia [Recovered/Resolved]
  - Oropharyngeal discomfort [Recovered/Resolved]
  - Wrong technique in drug usage process [None]

NARRATIVE: CASE EVENT DATE: 2014
